FAERS Safety Report 7825101-7 (Version None)
Quarter: 2011Q4

REPORT INFORMATION
  Report Type: 
  Country: None (occurrence: None)
  Receive Date: 20111019
  Receipt Date: 20101005
  Transmission Date: 20120403
  Serious: No
  Sender: FDA-Public Use
  Company Number: US-BRISTOL-MYERS SQUIBB COMPANY-15319296

PATIENT
  Age: 53 Year
  Sex: Female

DRUGS (2)
  1. CADUET [Concomitant]
  2. AVALIDE [Suspect]
     Dosage: THERAPY STARTED:4 YEARS AGO,ONGOING

REACTIONS (1)
  - BLOOD PRESSURE INADEQUATELY CONTROLLED [None]
